FAERS Safety Report 18940446 (Version 1)
Quarter: 2021Q1

REPORT INFORMATION
  Report Type: Report from Study
  Country: US (occurrence: US)
  Receive Date: 20210225
  Receipt Date: 20210225
  Transmission Date: 20210420
  Serious: Yes (Other)
  Sender: FDA-Public Use
  Company Number: US-BAYER-2021-079758

PATIENT
  Age: 44 Year
  Sex: Male

DRUGS (3)
  1. MONTELUKAST [Concomitant]
     Active Substance: MONTELUKAST SODIUM
  2. ASA [Suspect]
     Active Substance: ASPIRIN
     Dosage: 325 MG
  3. KETOROLAC [Suspect]
     Active Substance: KETOROLAC TROMETHAMINE
     Dosage: 2.08 MG

REACTIONS (1)
  - Aspirin-exacerbated respiratory disease [None]
